FAERS Safety Report 25682889 (Version 1)
Quarter: 2025Q3

REPORT INFORMATION
  Report Type: Spontaneous
  Country: EU (occurrence: EU)
  Receive Date: 20250814
  Receipt Date: 20250814
  Transmission Date: 20251021
  Serious: Yes (Other)
  Sender: BridgeBio Pharma
  Company Number: EU-BAYER-2025A105641

PATIENT

DRUGS (1)
  1. ACORAMIDIS [Suspect]
     Active Substance: ACORAMIDIS

REACTIONS (1)
  - Dementia [Unknown]
